FAERS Safety Report 8567917-8 (Version None)
Quarter: 2012Q3

REPORT INFORMATION
  Report Type: 
  Country: None (occurrence: None)
  Receive Date: 20120803
  Receipt Date: 20120727
  Transmission Date: 20120928
  Serious: Yes (Other)
  Sender: FDA-Public Use
  Company Number: US-US-EMD SERONO, INC.-7151154

PATIENT
  Sex: Female
  Weight: 57 kg

DRUGS (1)
  1. REBIF [Suspect]
     Indication: PRODUCT USED FOR UNKNOWN INDICATION
     Route: 058
     Dates: start: 20111202

REACTIONS (4)
  - SLOW SPEECH [None]
  - ABASIA [None]
  - FALL [None]
  - DEMENTIA [None]
